FAERS Safety Report 25892030 (Version 1)
Quarter: 2025Q4

REPORT INFORMATION
  Report Type: Other
  Country: TR (occurrence: TR)
  Receive Date: 20251007
  Receipt Date: 20251007
  Transmission Date: 20260117
  Serious: Yes (Hospitalization, Other)
  Sender: COREPHARMA LLC
  Company Number: TR-CorePharma LLC-2186105

PATIENT
  Age: 58 Year
  Sex: Female

DRUGS (9)
  1. RAMIPRIL [Suspect]
     Active Substance: RAMIPRIL
     Indication: Product used for unknown indication
  2. SPIRONOLACTONE [Suspect]
     Active Substance: SPIRONOLACTONE
  3. ASPIRIN [Concomitant]
     Active Substance: ASPIRIN
  4. ATORVASTATIN [Concomitant]
     Active Substance: ATORVASTATIN
  5. EMPAGLIFLOZIN [Concomitant]
     Active Substance: EMPAGLIFLOZIN
  6. GLICLAZIDE [Concomitant]
     Active Substance: GLICLAZIDE
  7. DIPYRIDAMOLE [Concomitant]
     Active Substance: DIPYRIDAMOLE
  8. FUROSEMIDE [Concomitant]
     Active Substance: FUROSEMIDE
  9. INSULIN NOS [Concomitant]
     Active Substance: INSULIN NOS

REACTIONS (1)
  - Hyperkalaemia [Recovered/Resolved]

NARRATIVE: CASE EVENT DATE: 20240101
